FAERS Safety Report 24009531 (Version 1)
Quarter: 2024Q2

REPORT INFORMATION
  Report Type: Spontaneous
  Country: US (occurrence: US)
  Receive Date: 20240625
  Receipt Date: 20240625
  Transmission Date: 20240715
  Serious: No
  Sender: FDA-Public Use
  Company Number: US-ROCHE-10000001369

PATIENT

DRUGS (1)
  1. BEVACIZUMAB [Suspect]
     Active Substance: BEVACIZUMAB
     Indication: Product used for unknown indication
     Route: 065

REACTIONS (6)
  - Haemorrhage [Unknown]
  - Platelet count decreased [Unknown]
  - Epistaxis [Unknown]
  - Lacrimation increased [Unknown]
  - Hypertension [Unknown]
  - Asthenia [Unknown]
